FAERS Safety Report 6633020-7 (Version None)
Quarter: 2010Q1

REPORT INFORMATION
  Report Type: 
  Country: None (occurrence: None)
  Receive Date: 20100312
  Receipt Date: 20100225
  Transmission Date: 20100710
  Serious: Yes (Hospitalization, Other)
  Sender: FDA-Public Use
  Company Number: JP-ROCHE-585401

PATIENT
  Sex: Female
  Weight: 47.6 kg

DRUGS (42)
  1. TOCILIZUMAB [Suspect]
     Indication: RHEUMATOID ARTHRITIS
     Route: 041
     Dates: start: 20080709, end: 20080709
  2. TOCILIZUMAB [Suspect]
     Route: 041
     Dates: start: 20080821, end: 20080821
  3. TOCILIZUMAB [Suspect]
     Route: 041
     Dates: start: 20080918, end: 20080918
  4. TOCILIZUMAB [Suspect]
     Route: 041
     Dates: start: 20081015, end: 20081015
  5. TOCILIZUMAB [Suspect]
     Route: 041
     Dates: start: 20081112, end: 20081112
  6. TOCILIZUMAB [Suspect]
     Route: 041
     Dates: start: 20081210, end: 20081210
  7. TOCILIZUMAB [Suspect]
     Route: 041
     Dates: start: 20090107, end: 20090107
  8. TOCILIZUMAB [Suspect]
     Route: 041
     Dates: start: 20090208, end: 20090208
  9. TOCILIZUMAB [Suspect]
     Route: 041
     Dates: start: 20090304, end: 20090304
  10. TOCILIZUMAB [Suspect]
     Route: 041
     Dates: start: 20090401, end: 20090401
  11. TOCILIZUMAB [Suspect]
     Route: 041
     Dates: start: 20090428, end: 20090428
  12. TOCILIZUMAB [Suspect]
     Route: 041
     Dates: start: 20090526, end: 20090526
  13. TOCILIZUMAB [Suspect]
     Route: 041
     Dates: start: 20090623
  14. ISCOTIN [Suspect]
     Route: 048
     Dates: start: 20080709, end: 20080807
  15. AMINO ACIDS/ELECTROLYTES/GLUCOSE/MULTIVITAMIN NOS [Suspect]
     Indication: DRUG USE FOR UNKNOWN INDICATION
     Dosage: DRUG NAME: FULCALIQ 2
     Route: 042
  16. INTRALIPID 10% [Suspect]
     Indication: DRUG USE FOR UNKNOWN INDICATION
     Route: 042
  17. RHEUMATREX [Concomitant]
     Route: 048
     Dates: end: 20080713
  18. PREDNISOLONE [Concomitant]
     Dosage: FORM: PERIORAL AGENT
     Route: 048
     Dates: end: 20080722
  19. PREDNISOLONE [Concomitant]
     Dosage: FORM: PERIORAL AGENT
     Route: 048
     Dates: start: 20080723, end: 20080907
  20. PREDNISOLONE [Concomitant]
     Dosage: FORM: PERIORAL AGENT
     Route: 048
     Dates: start: 20080908, end: 20080910
  21. PREDNISOLONE [Concomitant]
     Dosage: FORM: PERIORAL AGENT
     Route: 048
     Dates: start: 20080911, end: 20080916
  22. PREDNISOLONE [Concomitant]
     Dosage: FORM: PERIORAL AGENT
     Route: 048
     Dates: start: 20080917, end: 20080919
  23. PREDNISOLONE [Concomitant]
     Dosage: FORM: PERIORAL AGENT
     Route: 048
     Dates: start: 20080920, end: 20081014
  24. PREDNISOLONE [Concomitant]
     Dosage: FORM: PERIORAL AGENT
     Route: 048
     Dates: start: 20081015, end: 20081028
  25. PREDNISOLONE [Concomitant]
     Dosage: FORM: PERIORAL AGENT
     Route: 048
     Dates: start: 20081029
  26. SOLU-CORTEF [Concomitant]
     Dosage: ROUTE: INTRAVENOUS NOS
     Route: 042
     Dates: start: 20080709, end: 20080709
  27. SAIREI-TO [Concomitant]
     Route: 048
     Dates: end: 20080714
  28. METHYCOBAL [Concomitant]
     Dosage: FORM: FORM: PERIORAL AGENT
     Route: 048
     Dates: end: 20080714
  29. DASEN [Concomitant]
     Dosage: FORM: ORAL FORMULATION NOS
     Route: 048
     Dates: end: 20080714
  30. MUCODYNE [Concomitant]
     Dosage: FORM: ORAL FORMULATION NOS
     Route: 048
     Dates: end: 20080714
  31. LIPITOR [Concomitant]
     Route: 048
  32. ASPARA-CA [Concomitant]
     Route: 048
  33. ROCALTROL [Concomitant]
     Route: 048
  34. SELBEX [Concomitant]
     Dosage: FORM: PERIORAL AGENT
     Route: 048
  35. GLAKAY [Concomitant]
     Route: 048
  36. NU-LOTAN [Concomitant]
     Route: 048
  37. AMLODIPINE [Concomitant]
     Route: 048
  38. OMEPRAL [Concomitant]
     Route: 048
  39. BUFFERIN [Concomitant]
     Dosage: DRUG: BUFFERIN 81 MG
     Route: 048
  40. FOLIAMIN [Concomitant]
     Route: 048
  41. BIOFERMIN [Concomitant]
     Dosage: FORM: ORAL FORMULATION NOS
     Route: 048
     Dates: start: 20080428
  42. PYDOXAL [Concomitant]
     Route: 048
     Dates: start: 20080709, end: 20080807

REACTIONS (2)
  - DIARRHOEA [None]
  - HEPATIC FUNCTION ABNORMAL [None]
